FAERS Safety Report 24631182 (Version 1)
Quarter: 2024Q4

REPORT INFORMATION
  Report Type: Spontaneous
  Country: CN (occurrence: CN)
  Receive Date: 20241118
  Receipt Date: 20241118
  Transmission Date: 20250114
  Serious: Yes (Life-Threatening, Hospitalization)
  Sender: ROCHE
  Company Number: CN-ROCHE-10000133609

PATIENT
  Age: 44 Year
  Sex: Male

DRUGS (1)
  1. ROZLYTREK [Suspect]
     Active Substance: ENTRECTINIB
     Indication: Lung adenocarcinoma stage IV
     Route: 048
     Dates: start: 20240924, end: 20241029

REACTIONS (7)
  - Ventricular tachycardia [Recovering/Resolving]
  - Carbon dioxide decreased [Recovering/Resolving]
  - Transaminases increased [Recovering/Resolving]
  - Troponin increased [Recovering/Resolving]
  - Myocardial necrosis marker increased [Recovering/Resolving]
  - Dizziness [Recovering/Resolving]
  - Brain natriuretic peptide increased [Recovering/Resolving]

NARRATIVE: CASE EVENT DATE: 20241029
